FAERS Safety Report 9551808 (Version 2)
Quarter: 2013Q4

REPORT INFORMATION
  Report Type: Spontaneous
  Country: US (occurrence: US)
  Receive Date: 20130925
  Receipt Date: 20131030
  Transmission Date: 20140711
  Serious: No
  Sender: FDA-Public Use
  Company Number: US-009507513-1309USA010227

PATIENT
  Age: 23 Year
  Sex: Female
  Weight: 109.3 kg

DRUGS (2)
  1. NUVARING [Suspect]
     Indication: CONTRACEPTION
     Dosage: STANDARD DOSE AND FREQUENCY
     Route: 067
     Dates: start: 201212
  2. ZANTAC [Concomitant]

REACTIONS (1)
  - Menorrhagia [Recovered/Resolved]
